FAERS Safety Report 16333464 (Version 2)
Quarter: 2019Q2

REPORT INFORMATION
  Report Type: Report from Study
  Country: US (occurrence: US)
  Receive Date: 20190520
  Receipt Date: 20190617
  Transmission Date: 20190711
  Serious: Yes (Other)
  Sender: FDA-Public Use
  Company Number: US-GILEAD-2019-0408808

PATIENT
  Age: 71 Year
  Sex: Male

DRUGS (1)
  1. AMBRISENTAN [Suspect]
     Active Substance: AMBRISENTAN
     Indication: PRODUCT USED FOR UNKNOWN INDICATION
     Dosage: 5 MG, QD
     Route: 048
     Dates: start: 20181024

REACTIONS (8)
  - Cardiac disorder [Not Recovered/Not Resolved]
  - Joint injury [Unknown]
  - Peripheral swelling [Unknown]
  - Weight increased [Unknown]
  - Renal impairment [Not Recovered/Not Resolved]
  - Dizziness [Unknown]
  - Contusion [Unknown]
  - Syncope [Unknown]
